FAERS Safety Report 23125198 (Version 1)
Quarter: 2023Q4

REPORT INFORMATION
  Report Type: Spontaneous
  Country: US (occurrence: None)
  Receive Date: 20231030
  Receipt Date: 20231030
  Transmission Date: 20240109
  Serious: Yes (Hospitalization)
  Sender: FDA-Public Use
  Company Number: None

PATIENT
  Sex: Female

DRUGS (1)
  1. OPSUMIT [Suspect]
     Active Substance: MACITENTAN
     Indication: Pulmonary arterial hypertension
     Dosage: FREQUENCY : DAILY;?
     Route: 048
     Dates: start: 201611

REACTIONS (13)
  - Oedema peripheral [None]
  - Headache [None]
  - Arthralgia [None]
  - Pain in extremity [None]
  - Asthenia [None]
  - Oedema peripheral [None]
  - Dyspnoea [None]
  - Haemoglobin decreased [None]
  - Pain [None]
  - Gastrointestinal haemorrhage [None]
  - Fluid retention [None]
  - Oxygen consumption increased [None]
  - Hypersomnia [None]
